FAERS Safety Report 7301051-X (Version None)
Quarter: 2011Q1

REPORT INFORMATION
  Report Type: 
  Country: None (occurrence: None)
  Receive Date: 20110218
  Receipt Date: 20110207
  Transmission Date: 20110831
  Serious: Yes (Hospitalization, Other)
  Sender: FDA-Public Use
  Company Number: GB-AMGEN-GBRSP2010007254

PATIENT
  Age: 32 Year
  Sex: Female
  Weight: 38 kg

DRUGS (4)
  1. ENBREL [Suspect]
     Indication: JUVENILE ARTHRITIS
     Dosage: UNK
     Dates: start: 20030101
  2. ENBREL [Suspect]
     Dosage: 25 MG, 2X/WEEK
     Route: 058
     Dates: start: 20101101
  3. DICLOFENAC [Concomitant]
     Dosage: 75 MG, 2X/DAY
     Route: 048
  4. ACETAMINOPHEN [Concomitant]
     Dosage: UNK UNK, PRN
     Route: 048

REACTIONS (9)
  - RASH MACULAR [None]
  - HYPERSENSITIVITY [None]
  - PRODUCT QUALITY ISSUE [None]
  - ABDOMINAL DISCOMFORT [None]
  - ERYTHEMA [None]
  - TACHYCARDIA [None]
  - PALPITATIONS [None]
  - PRURITUS [None]
  - ABDOMINAL PAIN UPPER [None]
